FAERS Safety Report 21188278 (Version 1)
Quarter: 2022Q3

REPORT INFORMATION
  Report Type: Spontaneous
  Country: FR (occurrence: FR)
  Receive Date: 20220809
  Receipt Date: 20220809
  Transmission Date: 20221027
  Serious: Yes (Hospitalization, Other)
  Sender: FDA-Public Use
  Company Number: FR-AFSSAPS-AN20221694

PATIENT
  Age: 79 Year
  Sex: Female
  Weight: 73.3 kg

DRUGS (7)
  1. AMOXICILLIN [Suspect]
     Active Substance: AMOXICILLIN
     Indication: Arthritis bacterial
     Dosage: 3 GRAM, ONCE A DAY
     Route: 042
     Dates: start: 20210917, end: 20210918
  2. KETOPROFEN [Suspect]
     Active Substance: KETOPROFEN
     Indication: Crystal arthropathy
     Dosage: 200 MILLIGRAM, ONCE A DAY
     Route: 042
     Dates: start: 20210922, end: 20210925
  3. GENTAMICIN [Suspect]
     Active Substance: GENTAMICIN
     Indication: Arthritis bacterial
     Dosage: 240 MILLIGRAM, ONCE A DAY
     Route: 042
     Dates: start: 20210918, end: 20210920
  4. CLOXACILLIN SODIUM [Suspect]
     Active Substance: CLOXACILLIN SODIUM
     Indication: Arthritis bacterial
     Dosage: 12 GRAM, ONCE A DAY
     Route: 042
     Dates: start: 20210918, end: 20210925
  5. LOVENOX [Concomitant]
     Active Substance: ENOXAPARIN SODIUM
     Indication: Product used for unknown indication
     Dosage: 1 DOSAGE FORM, ONCE A DAY
     Route: 058
     Dates: start: 20210917, end: 20211008
  6. Temesta [Concomitant]
     Indication: Product used for unknown indication
     Dosage: 1 MILLIGRAM, ONCE A DAY
     Route: 048
     Dates: start: 20210917
  7. ESOMEPRAZOLE [Concomitant]
     Active Substance: ESOMEPRAZOLE
     Indication: Product used for unknown indication
     Dosage: 20 MILLIGRAM, ONCE A DAY
     Route: 048
     Dates: start: 20210922, end: 20211011

REACTIONS (1)
  - Cutaneous vasculitis [Recovered/Resolved]

NARRATIVE: CASE EVENT DATE: 20210922
